FAERS Safety Report 6029549-5 (Version None)
Quarter: 2009Q1

REPORT INFORMATION
  Report Type: 
  Country: None (occurrence: None)
  Receive Date: 20090107
  Receipt Date: 20081217
  Transmission Date: 20090719
  Serious: Yes (Other)
  Sender: FDA-Public Use
  Company Number: US-BAYER-US-2007-040724

PATIENT
  Age: 63 Year
  Sex: Male
  Weight: 88 kg

DRUGS (78)
  1. MAGNEVIST [Suspect]
     Indication: NUCLEAR MAGNETIC RESONANCE IMAGING
     Dosage: TOTAL DAILY DOSE: 20 ML
     Dates: start: 19970822, end: 19970822
  2. MAGNEVIST [Suspect]
     Dates: start: 19980611, end: 19980611
  3. OMNISCAN [Suspect]
     Indication: ANGIOGRAM
  4. IRON SULFATETHIAMIN COMPOUND TAB [Concomitant]
  5. EPOGEN [Concomitant]
  6. LASIX [Concomitant]
  7. NORVASC [Concomitant]
  8. HYTRIN [Concomitant]
  9. REMERON [Concomitant]
  10. PROGRAF [Concomitant]
     Dosage: TOTAL DAILY DOSE: 2 G
     Route: 048
  11. COUMADIN [Concomitant]
     Dates: start: 19980101
  12. ACYCLOVIR [Concomitant]
     Route: 048
  13. ALBUTEROL [Concomitant]
     Indication: BRONCHOSPASM
  14. ATROVENT [Concomitant]
  15. CELEXA [Concomitant]
  16. CELLCEPT [Concomitant]
     Dosage: TOTAL DAILY DOSE: 1000 MG
     Route: 048
  17. CELLCEPT [Concomitant]
  18. CUVAR [Concomitant]
  19. CYTOMEL [Concomitant]
  20. DAPSONE [Concomitant]
  21. FLOMAX [Concomitant]
  22. LEVOXYL [Concomitant]
  23. PROTONIX [Concomitant]
  24. WELLBUTRIN XL [Concomitant]
  25. MAGNESIUM SUPPLEMENTATION [Concomitant]
     Indication: MINERAL SUPPLEMENTATION
  26. PHOSLO [Concomitant]
     Indication: SUPPLEMENTATION THERAPY
  27. BETA-AGONIST INHALERS [Concomitant]
     Route: 055
  28. PREDNISONE [Concomitant]
     Indication: POLYMYALGIA RHEUMATICA
  29. EPOGEN [Concomitant]
     Indication: ANAEMIA
     Route: 058
     Dates: start: 20030709
  30. EPOGEN [Concomitant]
     Route: 058
  31. EPOGEN [Concomitant]
     Route: 058
     Dates: start: 20010507, end: 20020328
  32. EPOGEN [Concomitant]
     Route: 058
     Dates: start: 20020329, end: 20020401
  33. EPOGEN [Concomitant]
     Route: 058
     Dates: start: 20010402, end: 20010506
  34. EPOGEN [Concomitant]
     Route: 058
     Dates: start: 20030409, end: 20030708
  35. EPOGEN [Concomitant]
     Route: 058
     Dates: start: 20021016, end: 20030318
  36. EPOGEN [Concomitant]
     Route: 058
     Dates: start: 20030319, end: 20030408
  37. EPOGEN [Concomitant]
     Route: 058
     Dates: start: 20020402, end: 20021015
  38. ANTIBIOTICS [Concomitant]
     Indication: PERITONITIS
     Dates: start: 20000601
  39. SINGULAIR [Concomitant]
     Dates: start: 20000801, end: 20000801
  40. RENAGEL [Concomitant]
     Indication: SUPPLEMENTATION THERAPY
  41. NEPHRO-VITE [Concomitant]
     Indication: SUPPLEMENTATION THERAPY
  42. VITAMIN E [Concomitant]
  43. EFFEXOR [Concomitant]
     Indication: DEPRESSION
  44. HECTOROL [Concomitant]
  45. CIPROFLOXACIN [Concomitant]
     Indication: UPPER RESPIRATORY TRACT INFECTION
     Dates: start: 20040201
  46. ASPIRIN [Concomitant]
     Dates: start: 20010101
  47. PROCRIT [Concomitant]
  48. SYNTHROID [Concomitant]
     Route: 048
  49. CORMAX [Concomitant]
  50. DITROPAN [Concomitant]
  51. ACTONEL [Concomitant]
  52. TYLENOL (CAPLET) [Concomitant]
  53. VICODIN [Concomitant]
  54. COUMADIN [Concomitant]
     Route: 048
  55. MYCOPHENOTATE MOFETIL [Concomitant]
  56. TACROLIMUS [Concomitant]
  57. PANTOPRAZOLE [Concomitant]
  58. TAMSULOSIN HCL [Concomitant]
  59. GLUCOSAMINE AND CHONDROITIN [Concomitant]
  60. OMEGA-3 FATTY ACIDS [Concomitant]
  61. CINICALCET [Concomitant]
  62. VIOXX [Concomitant]
  63. PRILOSEC [Concomitant]
  64. COZAAR [Concomitant]
  65. VITAMIN E [Concomitant]
  66. COLACE [Concomitant]
  67. MIRALAX [Concomitant]
  68. 1.5% DEXTROSE DIALYSATE [Concomitant]
     Dates: start: 20010101
  69. SINEMET [Concomitant]
     Route: 048
  70. INFLUENZA VIRUS VACCINE TRIVALENT [Concomitant]
     Route: 030
  71. TESTOSTERONE [Concomitant]
     Dates: end: 19980101
  72. LEVAQUIN [Concomitant]
     Route: 048
     Dates: start: 20040503, end: 20040512
  73. QVAR MDI [Concomitant]
     Route: 055
  74. COMBIVENT [Concomitant]
     Route: 055
  75. DIFLUCAN [Concomitant]
     Route: 048
  76. FERRLECIT [Concomitant]
  77. ALTACE [Concomitant]
  78. DILTIAZEM [Concomitant]

REACTIONS (30)
  - ABASIA [None]
  - ALOPECIA [None]
  - ANXIETY [None]
  - ARTHRALGIA [None]
  - BLISTER [None]
  - BONE PAIN [None]
  - DRY SKIN [None]
  - EMOTIONAL DISTRESS [None]
  - FATIGUE [None]
  - GAIT DISTURBANCE [None]
  - HYPERKERATOSIS [None]
  - INJURY [None]
  - JOINT INSTABILITY [None]
  - JOINT RANGE OF MOTION DECREASED [None]
  - JOINT STIFFNESS [None]
  - MOBILITY DECREASED [None]
  - MUSCULAR WEAKNESS [None]
  - MYALGIA [None]
  - NEPHROGENIC SYSTEMIC FIBROSIS [None]
  - OEDEMA PERIPHERAL [None]
  - PAIN [None]
  - PEAU D'ORANGE [None]
  - PRURITUS [None]
  - QUALITY OF LIFE DECREASED [None]
  - RASH [None]
  - SKIN HYPERTROPHY [None]
  - SKIN INDURATION [None]
  - SKIN NODULE [None]
  - SKIN TIGHTNESS [None]
  - SUBCUTANEOUS NODULE [None]
